FAERS Safety Report 6565419-1 (Version None)
Quarter: 2010Q1

REPORT INFORMATION
  Report Type: 
  Country: None (occurrence: None)
  Receive Date: 20100201
  Receipt Date: 20100119
  Transmission Date: 20100710
  Serious: Yes (Other)
  Sender: FDA-Public Use
  Company Number: NL-JNJFOC-20100200055

PATIENT
  Sex: Female
  Weight: 80 kg

DRUGS (4)
  1. ZALDIAR [Suspect]
     Indication: HERNIA
     Route: 048
  2. VENLAFAXINE [Interacting]
     Indication: ANXIETY DISORDER
     Route: 048
  3. EZETIMIBE W/SIMVASTATIN [Concomitant]
     Dosage: 10MG/20MG
     Route: 065
  4. LEVOCETIRIZINE DIHYDROCHLORIDE [Concomitant]
     Route: 065

REACTIONS (8)
  - AGITATION [None]
  - ANXIETY DISORDER [None]
  - DRUG INTERACTION [None]
  - HYPERHIDROSIS [None]
  - INHIBITORY DRUG INTERACTION [None]
  - MOOD ALTERED [None]
  - MUSCLE CONTRACTIONS INVOLUNTARY [None]
  - SOMNOLENCE [None]
